FAERS Safety Report 16516281 (Version 1)
Quarter: 2019Q3

REPORT INFORMATION
  Report Type: Spontaneous
  Country: US (occurrence: US)
  Receive Date: 20190702
  Receipt Date: 20190702
  Transmission Date: 20191004
  Serious: Yes (Hospitalization)
  Sender: FDA-Public Use
  Company Number: None

PATIENT
  Age: 73 Year
  Sex: Male
  Weight: 65.3 kg

DRUGS (3)
  1. CAPECITABINE. [Suspect]
     Active Substance: CAPECITABINE
     Indication: PANCREATIC CARCINOMA
     Route: 048
     Dates: start: 20190506, end: 20190517
  2. SBRT 7.0 GY X 5 FX = 35 GY EVERY OTHER WEEKDAY [Concomitant]
     Dates: start: 20190506, end: 20190517
  3. OPEN PANCREATICODUODENECTOMY AND CHOLECYSTECTOMY [Concomitant]
     Dates: start: 20190612, end: 20190612

REACTIONS (6)
  - Cholecystectomy [None]
  - Nausea [None]
  - Device dislocation [None]
  - Impaired gastric emptying [None]
  - Vomiting [None]
  - Ileus [None]

NARRATIVE: CASE EVENT DATE: 20190619
